FAERS Safety Report 6129836-6 (Version None)
Quarter: 2009Q1

REPORT INFORMATION
  Report Type: 
  Country: None (occurrence: None)
  Receive Date: 20090324
  Receipt Date: 20090317
  Transmission Date: 20090719
  Serious: Yes (Other)
  Sender: FDA-Public Use
  Company Number: PHHY2009JP04010

PATIENT
  Sex: Female
  Weight: 44 kg

DRUGS (4)
  1. DIOVAN [Suspect]
     Indication: HYPERTENSION
     Dosage: 80 MG, QD
     Route: 048
     Dates: start: 20071220, end: 20080124
  2. ADALAT CC [Concomitant]
     Indication: HYPERTENSION
     Dosage: 20 MG
     Route: 048
     Dates: start: 20050408
  3. LIPITOR [Concomitant]
     Dosage: 5 MG
     Route: 048
     Dates: start: 20080110
  4. BUFFERIN [Concomitant]
     Dosage: 81 MG
     Route: 048
     Dates: start: 20080110, end: 20080124

REACTIONS (3)
  - ANAEMIA [None]
  - GASTROINTESTINAL HAEMORRHAGE [None]
  - HAEMOGLOBIN DECREASED [None]
